FAERS Safety Report 21254343 (Version 1)
Quarter: 2022Q3

REPORT INFORMATION
  Report Type: Spontaneous
  Country: CN (occurrence: CN)
  Receive Date: 20220825
  Receipt Date: 20220825
  Transmission Date: 20221026
  Serious: Yes (Hospitalization, Other)
  Sender: FDA-Public Use
  Company Number: CN-ORGANON-O2208CHN001802

PATIENT
  Age: 31 Year
  Sex: Female

DRUGS (11)
  1. FOLLITROPIN BETA [Suspect]
     Active Substance: FOLLITROPIN BETA
     Indication: Ovulation induction
     Dosage: 200IU, QD
     Route: 058
     Dates: start: 20220623, end: 20220629
  2. FOLLITROPIN BETA [Suspect]
     Active Substance: FOLLITROPIN BETA
  3. CETRORELIX ACETATE [Suspect]
     Active Substance: CETRORELIX ACETATE
     Indication: Ovulation induction
     Dosage: 0.25MG, QD
     Route: 058
     Dates: start: 20220623, end: 20220623
  4. CETRORELIX ACETATE [Suspect]
     Active Substance: CETRORELIX ACETATE
     Dosage: 0.25MG, QD
     Route: 058
     Dates: start: 20220627, end: 20220627
  5. CHORIONIC GONADOTROPHIN [Suspect]
     Active Substance: CHORIOGONADOTROPIN ALFA
     Indication: Ovulation induction
     Dosage: 2000IU, QD
     Route: 030
     Dates: start: 20220704, end: 20220704
  6. MENOTROPINS [Suspect]
     Active Substance: MENOTROPINS
     Indication: Ovulation induction
     Dosage: 225IU, QD
     Route: 030
     Dates: start: 20220630, end: 20220702
  7. MENOTROPINS [Suspect]
     Active Substance: MENOTROPINS
     Dosage: 300IU, QD
     Route: 030
     Dates: start: 20220703, end: 20220704
  8. UROFOLLITROPIN [Suspect]
     Active Substance: UROFOLLITROPIN
     Indication: Ovulation induction
     Dosage: 150IU, QD
     Route: 030
     Dates: start: 20220630, end: 20220702
  9. UROFOLLITROPIN [Suspect]
     Active Substance: UROFOLLITROPIN
     Dosage: 75IU, QD
     Route: 030
     Dates: start: 20220703, end: 20220704
  10. LUTROPIN ALFA [Suspect]
     Active Substance: LUTROPIN ALFA
     Indication: Ovulation induction
     Dosage: 75IU, QD
     Route: 058
     Dates: start: 20220703, end: 20220704
  11. SODIUM CHLORIDE [Concomitant]
     Active Substance: SODIUM CHLORIDE
     Indication: Ovulation induction
     Dosage: 1ML, QD
     Dates: start: 20220704, end: 20220704

REACTIONS (4)
  - Ovarian hyperstimulation syndrome [Recovering/Resolving]
  - Chest discomfort [Recovering/Resolving]
  - Abdominal distension [Recovering/Resolving]
  - Urinary tract pain [Recovering/Resolving]

NARRATIVE: CASE EVENT DATE: 20220101
